FAERS Safety Report 9098858 (Version 1)
Quarter: 2013Q1

REPORT INFORMATION
  Report Type: Spontaneous
  Country: GB (occurrence: GB)
  Receive Date: 20130213
  Receipt Date: 20130213
  Transmission Date: 20140127
  Serious: Yes (Other)
  Sender: FDA-Public Use
  Company Number: GB-TEVA-370153ISR

PATIENT
  Sex: Male
  Weight: 95.34 kg

DRUGS (13)
  1. METFORMIN [Suspect]
     Indication: TYPE 2 DIABETES MELLITUS
     Dosage: 500 MILLIGRAM DAILY; DOSE TITRATED- TAKEN FOR ONE WEEK
     Dates: start: 20121010
  2. METFORMIN [Suspect]
     Dosage: 2 TABLET DAILY; DOSE TITRATED- TAKEN FOR ONE WEEK AND THEN INCREASED
  3. METFORMIN [Suspect]
     Dosage: 3 TABLET DAILY; DOSE TITRATED- LEVEL REACHED AFTER 3 WEEKS
  4. METFORMIN [Suspect]
     Dosage: 1 TABLET DAILY; SECOND DOSE TITRATION-INCREASED AFTER A WEEK
  5. METFORMIN [Suspect]
     Dosage: 2 TABLET DAILY; SECOND DOSE TITRATION-INCREASED AFTER A WEEK
  6. METFORMIN [Suspect]
     Dosage: 3 TABLET DAILY; SECOND DOSE TITRATION-LEVEL REACHED AFTER 3 WEEKS
  7. PROPRANOLOL [Concomitant]
     Dosage: 40 MILLIGRAM DAILY;
  8. OMEPRAZOLE [Concomitant]
     Indication: PROPHYLAXIS AGAINST GASTROINTESTINAL ULCER
     Dosage: 40 MILLIGRAM DAILY;
  9. RAMIPRIL [Concomitant]
     Dosage: 2.5 MILLIGRAM DAILY;
     Route: 048
     Dates: start: 20120812
  10. SIMVASTATIN [Concomitant]
     Dosage: 20 MILLIGRAM DAILY;
     Route: 048
     Dates: start: 20021112
  11. FELODIPINE [Concomitant]
     Dosage: 5 MILLIGRAM DAILY;
     Route: 048
     Dates: start: 20030211
  12. CO-CODAMOL [Concomitant]
     Dosage: 15/500 PRN
     Route: 065
  13. FERROUS FUMARATE [Concomitant]
     Dosage: 305 MILLIGRAM DAILY;

REACTIONS (2)
  - Haemorrhage [Recovered/Resolved]
  - Anorectal discomfort [Recovered/Resolved]
